FAERS Safety Report 5014348-3 (Version None)
Quarter: 2006Q2

REPORT INFORMATION
  Report Type: 
  Country: None (occurrence: None)
  Receive Date: 20060411
  Receipt Date: 20060303
  Transmission Date: 20061013
  Serious: No
  Sender: FDA-Public Use
  Company Number: A03200601159

PATIENT
  Age: 55 Year
  Sex: Female

DRUGS (2)
  1. UROXATRAL [Suspect]
     Indication: POLLAKIURIA
     Dosage: 10 MG OD - ORAL
     Route: 048
     Dates: start: 20060104, end: 20060105
  2. UROXATRAL [Suspect]
     Indication: URINARY INCONTINENCE
     Dosage: 10 MG OD - ORAL
     Route: 048
     Dates: start: 20060104, end: 20060105

REACTIONS (2)
  - HEADACHE [None]
  - URTICARIA [None]
